FAERS Safety Report 6576885-X (Version None)
Quarter: 2010Q1

REPORT INFORMATION
  Report Type: 
  Country: None (occurrence: None)
  Receive Date: 20100210
  Receipt Date: 20100208
  Transmission Date: 20100710
  Serious: Yes (Hospitalization)
  Sender: FDA-Public Use
  Company Number: A0843799A

PATIENT
  Sex: Female
  Weight: 34 kg

DRUGS (1)
  1. FLIXOTIDE [Suspect]
     Indication: ASTHMA
     Dosage: 2PUFF PER DAY
     Route: 055
     Dates: start: 20091101, end: 20091229

REACTIONS (1)
  - ASTHMATIC CRISIS [None]
